FAERS Safety Report 8276827-5 (Version None)
Quarter: 2012Q2

REPORT INFORMATION
  Report Type: 
  Country: None (occurrence: None)
  Receive Date: 20120409
  Receipt Date: 20120328
  Transmission Date: 20120825
  Serious: Yes (Hospitalization, Other)
  Sender: FDA-Public Use
  Company Number: 2012SP017105

PATIENT
  Age: 77 Year
  Sex: Female

DRUGS (8)
  1. REMERON [Suspect]
     Indication: PRODUCT USED FOR UNKNOWN INDICATION
     Dosage: PO
     Route: 048
     Dates: start: 20110718, end: 20110718
  2. LORAZEPAM [Suspect]
     Indication: PRODUCT USED FOR UNKNOWN INDICATION
     Dosage: 1 MG;ONCE;PO
     Route: 048
     Dates: start: 20110718, end: 20110718
  3. ZOLPIDEM TARTRATE [Suspect]
     Indication: PRODUCT USED FOR UNKNOWN INDICATION
     Dosage: 6.25 MG;ONCE;PO
     Route: 048
     Dates: start: 20110718, end: 20110718
  4. CODEIN PHOSPHATE (CODEINE PHOSPHATE) [Suspect]
     Indication: PRODUCT USED FOR UNKNOWN INDICATION
     Dates: start: 20110718
  5. ACETAMINOPHEN [Suspect]
     Indication: PRODUCT USED FOR UNKNOWN INDICATION
     Dates: start: 20110718
  6. VALIUM [Suspect]
     Indication: PRODUCT USED FOR UNKNOWN INDICATION
     Dosage: 5 MG;ONCE;PO
     Route: 048
     Dates: start: 20110718, end: 20110718
  7. LEXOTANIL (BROMAZEPAM) [Suspect]
     Indication: PRODUCT USED FOR UNKNOWN INDICATION
     Dosage: 3 MG
     Dates: start: 20110718
  8. ALCOHOL (ETHANOL) [Suspect]

REACTIONS (6)
  - MULTIPLE DRUG OVERDOSE INTENTIONAL [None]
  - ALCOHOL USE [None]
  - RESPIRATORY FAILURE [None]
  - SUICIDE ATTEMPT [None]
  - ATRIAL FIBRILLATION [None]
  - COMA [None]
